FAERS Safety Report 5085697-8 (Version None)
Quarter: 2006Q3

REPORT INFORMATION
  Report Type: 
  Country: None (occurrence: None)
  Receive Date: 20060822
  Receipt Date: 20060522
  Transmission Date: 20061208
  Serious: Yes (Hospitalization, Disabling)
  Sender: FDA-Public Use
  Company Number: US-ROCHE-449314

PATIENT
  Age: 55 Year
  Sex: Female
  Weight: 59.9 kg

DRUGS (1)
  1. BONIVA [Suspect]
     Indication: OSTEOPENIA
     Route: 048
     Dates: start: 20051215, end: 20060507

REACTIONS (4)
  - BLOOD CALCIUM DECREASED [None]
  - GRAND MAL CONVULSION [None]
  - SPINAL FRACTURE [None]
  - VITAMIN D DECREASED [None]
